FAERS Safety Report 10954686 (Version 1)
Quarter: 2015Q1

REPORT INFORMATION
  Report Type: Spontaneous
  Country: US (occurrence: US)
  Receive Date: 20150325
  Receipt Date: 20150325
  Transmission Date: 20150721
  Serious: No
  Sender: FDA-Public Use
  Company Number: US-ASTRAZENECA-2006BM15757

PATIENT
  Age: 798 Month
  Sex: Female
  Weight: 87.5 kg

DRUGS (9)
  1. BYETTA [Suspect]
     Active Substance: EXENATIDE
     Indication: TYPE 2 DIABETES MELLITUS
     Dosage: 10 UG, TWO TIMES A DAY, STRENGTH 0.25MG/ML
     Route: 058
     Dates: start: 20061002
  2. BYETTA [Suspect]
     Active Substance: EXENATIDE
     Indication: TYPE 2 DIABETES MELLITUS
     Dosage: STRENGTH 0.25MG/ML, 5 UG, TWO TIMES A DAY
     Route: 058
     Dates: start: 200608, end: 200701
  3. BYETTA [Suspect]
     Active Substance: EXENATIDE
     Indication: TYPE 2 DIABETES MELLITUS
     Dosage: STRENGTH 0.25MG/ML, 5 UG, TWO TIMES A DAY
     Route: 058
     Dates: start: 200606, end: 200607
  4. GLIMEPIRIDE. [Concomitant]
     Active Substance: GLIMEPIRIDE
     Route: 048
     Dates: end: 20061002
  5. PROTONIX [Concomitant]
     Active Substance: PANTOPRAZOLE SODIUM
     Dosage: UNK
  6. BYETTA [Suspect]
     Active Substance: EXENATIDE
     Indication: TYPE 2 DIABETES MELLITUS
     Dosage: 10 UG, TWO TIMES A DAY, STRENGTH 0.25MG/ML
     Route: 058
     Dates: start: 200701
  7. BYETTA [Suspect]
     Active Substance: EXENATIDE
     Indication: TYPE 2 DIABETES MELLITUS
     Dosage: 10 UG, TWO TIMES A DAY, STRENGTH 0.25MG/ML
     Route: 058
     Dates: start: 200607, end: 200608
  8. BYETTA [Suspect]
     Active Substance: EXENATIDE
     Indication: TYPE 2 DIABETES MELLITUS
     Dosage: STRENGTH 0.25MG/ML, 5 UG, TWO TIMES A DAY
     Route: 058
     Dates: start: 20060901, end: 20061001
  9. GLUCOPHAGE ^BRISTOL-MYERS SQUIBB^ [Concomitant]

REACTIONS (3)
  - Weight decreased [Unknown]
  - Blood glucose increased [Not Recovered/Not Resolved]
  - Nausea [Not Recovered/Not Resolved]

NARRATIVE: CASE EVENT DATE: 200606
